FAERS Safety Report 17322738 (Version 2)
Quarter: 2020Q1

REPORT INFORMATION
  Report Type: Spontaneous
  Country: US (occurrence: US)
  Receive Date: 20200127
  Receipt Date: 20200217
  Transmission Date: 20200409
  Serious: Yes (Death, Hospitalization)
  Sender: FDA-Public Use
  Company Number: US-009507513-2001USA008400

PATIENT
  Age: 50 Year
  Sex: Female
  Weight: 92.1 kg

DRUGS (36)
  1. CYCLOBENZAPRINE HYDROCHLORIDE. [Concomitant]
     Active Substance: CYCLOBENZAPRINE HYDROCHLORIDE
     Dosage: 1 TABLET 3 TIMES A DAY
     Route: 048
  2. DICLOFENAC [Concomitant]
     Active Substance: DICLOFENAC
     Dosage: 1 APPLICATION TWICE A DAY
     Route: 061
  3. OXYCONTIN [Concomitant]
     Active Substance: OXYCODONE HYDROCHLORIDE
     Dosage: 1 TABLET EVERY 8 HOURS
     Route: 048
  4. BENADRYL [Concomitant]
     Active Substance: DIPHENHYDRAMINE HYDROCHLORIDE
     Indication: PRURITUS
     Dosage: 1 APPLICATION FOUR TIMES A DAY
     Route: 061
  5. PRINIVIL [Concomitant]
     Active Substance: LISINOPRIL
     Dosage: 1 TABLET ONCE A DAY
     Route: 048
  6. MIRALAX [Concomitant]
     Active Substance: POLYETHYLENE GLYCOL 3350
     Dosage: 17 GRAM, ONCE A DAY
     Route: 048
  7. PREDNISONE. [Concomitant]
     Active Substance: PREDNISONE
     Dosage: 2 TABLETS, ONCE A DAY
     Route: 048
  8. SENOKOT [Concomitant]
     Active Substance: SENNOSIDES
     Dosage: 1 TABLET 3 TIMES A DAY
     Route: 048
  9. BUSPIRONE HYDROCHLORIDE. [Concomitant]
     Active Substance: BUSPIRONE HYDROCHLORIDE
     Dosage: 1 TABLET 2 TIMES A DAY
     Route: 048
  10. KLONOPIN [Concomitant]
     Active Substance: CLONAZEPAM
     Dosage: 1 TABLET 2 TIMES A DAY
     Route: 048
  11. LIDODERM [Concomitant]
     Active Substance: LIDOCAINE
     Dosage: FORMULATION: TOPICAL FILM, 1 PATCH TO AFFECTED AREA ONCE A DAY
     Route: 061
  12. SYNDROS [Concomitant]
     Active Substance: DRONABINOL
     Dosage: STRENGHT: 5 MG/ML, 0.8 MILLIGRAM/SQ. METER, Q12H
     Route: 048
  13. TRAZODONE HYDROCHLORIDE. [Concomitant]
     Active Substance: TRAZODONE HYDROCHLORIDE
     Indication: INSOMNIA
     Dosage: 1 TABLET EVERY NIGHT AT BEDTIME AS NEEDED
     Route: 048
  14. AZITHROMYCIN ANHYDROUS. [Concomitant]
     Active Substance: AZITHROMYCIN ANHYDROUS
     Dosage: 1 TABLET ONCE A DAY
     Route: 048
  15. XANAX [Concomitant]
     Active Substance: ALPRAZOLAM
     Indication: PANIC ATTACK
     Dosage: 1 TABLET EVERY 12 HOURS, AS NEEDED
     Route: 048
  16. CENTRUM ADULTS UNDER 50 [Concomitant]
     Active Substance: MINERALS\VITAMINS
     Dosage: 1 TABLET ONCE A DAY
     Route: 048
  17. CIPRO [Concomitant]
     Active Substance: CIPROFLOXACIN HYDROCHLORIDE
     Dosage: 1 TABLET EVERY 12 HOURS
     Route: 048
  18. ATROPINE SULFATE (+) DIPHENOXYLATE HYDROCHLORIDE [Concomitant]
     Indication: DIARRHOEA
     Dosage: 2 TABLETS FOUR TIMES A DAY, AS NEEDED
     Route: 048
  19. GABAPENTIN. [Concomitant]
     Active Substance: GABAPENTIN
     Dosage: 1 TABLET, 3 TIMES A DAY
     Route: 048
  20. LOMOTIL (LOPERAMIDE HYDROCHLORIDE) [Concomitant]
     Active Substance: LOPERAMIDE HYDROCHLORIDE
     Indication: DIARRHOEA
     Dosage: 2 TABLETS 4 TIMES A DAY
     Route: 048
  21. LOMOTIL (LOPERAMIDE HYDROCHLORIDE) [Concomitant]
     Active Substance: LOPERAMIDE HYDROCHLORIDE
     Dosage: 2 TABLETS 4 TIMES A DAY AS NEEDED
     Route: 048
  22. NORCO [Concomitant]
     Active Substance: ACETAMINOPHEN\HYDROCODONE BITARTRATE
     Dosage: 1 TABLET EVERY 4 HOURS AS NEEDED
     Route: 048
  23. POTASSIUM CHLORIDE. [Concomitant]
     Active Substance: POTASSIUM CHLORIDE
     Dosage: STRENGTH: 40 MEQ / 15 ML
     Route: 048
  24. PROAIR HFA [Concomitant]
     Active Substance: ALBUTEROL SULFATE
     Dosage: 2 PUFFS EVERY 4 HOURS AS NEEDED
  25. TRIUMEQ [Concomitant]
     Active Substance: ABACAVIR SULFATE\DOLUTEGRAVIR SODIUM\LAMIVUDINE
     Dosage: 1 TABLET ONCE A DAY
     Route: 048
  26. KEYTRUDA [Suspect]
     Active Substance: PEMBROLIZUMAB
     Indication: METASTATIC MALIGNANT MELANOMA
     Dosage: 200 MILLIGRAM, Q3W
     Route: 042
     Dates: start: 20170308, end: 20190726
  27. BENEFIBER [Concomitant]
     Active Substance: STARCH, WHEAT
     Dosage: 3.5 GRAM 2 TIMES A DAY
     Route: 048
  28. LYRICA [Concomitant]
     Active Substance: PREGABALIN
     Indication: NEUROPATHY PERIPHERAL
     Dosage: 1 CAPSULE 3 TIMES A DAY
     Route: 048
  29. QVAR [Concomitant]
     Active Substance: BECLOMETHASONE DIPROPIONATE
     Dosage: 2 PUFFS 2 TIMES A DAY
  30. FENTANYL. [Concomitant]
     Active Substance: FENTANYL
     Dosage: STRENGTH: 37.5 MCG/HR, 1 APLICATION EVERY 48 HOURS
     Route: 061
  31. HYDROXINE [Concomitant]
     Active Substance: HYDROXYZINE HYDROCHLORIDE
     Indication: PRURITUS
     Dosage: 1 TABLET, 4 TIMES A DAY AS NEEDED
     Route: 048
  32. IMODIUM A-D [Concomitant]
     Active Substance: LOPERAMIDE HYDROCHLORIDE
     Indication: DIARRHOEA
     Dosage: 1 TABLET EVERY 4 HOURS AS NEEDED
     Route: 048
  33. MELOXICAM. [Concomitant]
     Active Substance: MELOXICAM
     Dosage: 1 TABLET ONCE A DAY
     Route: 048
  34. OMEPRAZOLE. [Concomitant]
     Active Substance: OMEPRAZOLE
     Dosage: 1 CAPSULE ONCE A DAY
     Route: 048
  35. VITAMIN D (UNSPECIFIED) [Concomitant]
     Active Substance: VITAMIN D NOS
     Dosage: 1000 UNITS ONCE A DAY
     Route: 048
  36. ZOFRAN [Concomitant]
     Active Substance: ONDANSETRON HYDROCHLORIDE
     Dosage: 1 TABLET 3 TIMES A DAY
     Route: 048

REACTIONS (2)
  - Pneumonitis [Fatal]
  - Colitis [Fatal]

NARRATIVE: CASE EVENT DATE: 201905
